FAERS Safety Report 14168753 (Version 2)
Quarter: 2017Q4

REPORT INFORMATION
  Report Type: Report from Study
  Country: ES (occurrence: ES)
  Receive Date: 20171108
  Receipt Date: 20171110
  Transmission Date: 20180321
  Serious: Yes (Other)
  Sender: FDA-Public Use
  Company Number: ES-ROCHE-2018326

PATIENT

DRUGS (4)
  1. TOCILIZUMAB. [Suspect]
     Active Substance: TOCILIZUMAB
     Indication: UVEITIS
     Dosage: IN 1 PATIENT
     Route: 058
  2. TOCILIZUMAB. [Suspect]
     Active Substance: TOCILIZUMAB
     Indication: JUVENILE IDIOPATHIC ARTHRITIS
  3. TOCILIZUMAB. [Suspect]
     Active Substance: TOCILIZUMAB
     Indication: UVEITIS
     Dosage: DOSE: 8 MG/KG/4 W (N=21), 8 MG/KG/2 W (N=2); 8 MG/KG/8 W (N=1)
     Route: 042
  4. TOCILIZUMAB. [Suspect]
     Active Substance: TOCILIZUMAB
     Indication: JUVENILE IDIOPATHIC ARTHRITIS

REACTIONS (3)
  - Thrombocytopenia [Unknown]
  - Haemolytic anaemia [Unknown]
  - Pneumonia [Unknown]
